FAERS Safety Report 12246449 (Version 2)
Quarter: 2016Q2

REPORT INFORMATION
  Report Type: Spontaneous
  Country: US (occurrence: US)
  Receive Date: 20160407
  Receipt Date: 20160419
  Transmission Date: 20160815
  Serious: Yes (Other)
  Sender: FDA-Public Use
  Company Number: US-MDT-ADR-2016-00637

PATIENT
  Age: 60 Year
  Sex: Female

DRUGS (9)
  1. LIORESAL [Suspect]
     Active Substance: BACLOFEN
     Dosage: 325.4 MCG/DAY
     Route: 037
     Dates: start: 20160404
  2. SYNTHROID [Suspect]
     Active Substance: LEVOTHYROXINE SODIUM
  3. OMEPRAZOLE. [Suspect]
     Active Substance: OMEPRAZOLE
  4. ASPIRIN. [Suspect]
     Active Substance: ASPIRIN
  5. LIORESAL [Suspect]
     Active Substance: BACLOFEN
     Dosage: 185 MCG/DAY
     Route: 037
  6. ENABLEX [Suspect]
     Active Substance: DARIFENACIN HYDROBROMIDE
  7. FORTEO [Suspect]
     Active Substance: TERIPARATIDE
  8. LIORESAL [Suspect]
     Active Substance: BACLOFEN
     Dosage: 384 MCG/DAY
     Route: 037
     Dates: start: 2010, end: 20160404
  9. CALTRATE [Suspect]
     Active Substance: CALCIUM CARBONATE

REACTIONS (2)
  - Limb crushing injury [Unknown]
  - Muscle spasticity [Unknown]

NARRATIVE: CASE EVENT DATE: 201509
